FAERS Safety Report 13564580 (Version 2)
Quarter: 2017Q2

REPORT INFORMATION
  Report Type: Report from Study
  Country: None (occurrence: GB)
  Receive Date: 20170519
  Receipt Date: 20170614
  Transmission Date: 20170830
  Serious: Yes (Hospitalization, Other)
  Sender: FDA-Public Use
  Company Number: GB-ABBVIE-17K-167-1980789-00

PATIENT
  Age: 33 Year
  Sex: Female
  Weight: 42.9 kg

DRUGS (1)
  1. HUMIRA [Suspect]
     Active Substance: ADALIMUMAB
     Indication: PRODUCT USED FOR UNKNOWN INDICATION
     Route: 058
     Dates: start: 20150703

REACTIONS (6)
  - Lymphadenitis [Unknown]
  - Dehydration [Not Recovered/Not Resolved]
  - Intestinal obstruction [Unknown]
  - Tachycardia [Not Recovered/Not Resolved]
  - Hypophagia [Unknown]
  - C-reactive protein increased [Not Recovered/Not Resolved]

NARRATIVE: CASE EVENT DATE: 20170515
